FAERS Safety Report 15075453 (Version 2)
Quarter: 2023Q4

REPORT INFORMATION
  Report Type: Report from Study
  Country: US (occurrence: US)
  Receive Date: 20180627
  Receipt Date: 20231128
  Transmission Date: 20240110
  Serious: Yes (Other)
  Sender: FDA-Public Use
  Company Number: US-SAOL THERAPEUTICS-2017SAO01593

PATIENT
  Age: 44 Year
  Sex: Male

DRUGS (44)
  1. BACLOFEN [Suspect]
     Active Substance: BACLOFEN
     Dosage: 6.201 ?G, \DAY
     Route: 037
     Dates: start: 20171004, end: 20171005
  2. BACLOFEN [Suspect]
     Active Substance: BACLOFEN
     Dosage: 9.707 ?G, \DAY; MAX DOSE
     Route: 037
     Dates: start: 20171004, end: 20171005
  3. BACLOFEN [Suspect]
     Active Substance: BACLOFEN
     Dosage: 7.441 ?G, \DAY
     Route: 037
     Dates: start: 20171005, end: 20171009
  4. BACLOFEN [Suspect]
     Active Substance: BACLOFEN
     Dosage: 11.834 ?G, \DAY; MAX DOSE
     Route: 037
     Dates: start: 20171005, end: 20171009
  5. BACLOFEN [Suspect]
     Active Substance: BACLOFEN
     Dosage: 12.403 ?G, \DAY
     Route: 037
     Dates: start: 20171009
  6. BACLOFEN [Suspect]
     Active Substance: BACLOFEN
     Dosage: 15.115 ?G, \DAY; MAX DOSE
     Route: 037
     Dates: start: 20171009
  7. BACLOFEN [Suspect]
     Active Substance: BACLOFEN
     Dosage: 14.498 ?G, \DAY; MAX DOSE
     Route: 037
     Dates: start: 20171009
  8. BACLOFEN [Suspect]
     Active Substance: BACLOFEN
     Dosage: 15.524 ?G, \DAY
     Route: 037
     Dates: start: 20171011
  9. BACLOFEN [Suspect]
     Active Substance: BACLOFEN
     Dosage: 18.414 ?G, \DAY; MAX DOSE
     Route: 037
     Dates: start: 20171011
  10. DILAUDID [Suspect]
     Active Substance: HYDROMORPHONE HYDROCHLORIDE
     Dosage: 0.500 MG, \DAY
     Route: 037
     Dates: start: 20171004, end: 20171005
  11. DILAUDID [Suspect]
     Active Substance: HYDROMORPHONE HYDROCHLORIDE
     Dosage: 0.782 MG, \DAY; MAX DOSE
     Route: 037
     Dates: start: 20171004, end: 20171005
  12. DILAUDID [Suspect]
     Active Substance: HYDROMORPHONE HYDROCHLORIDE
     Dosage: 0.600 MG, \DAY
     Route: 037
     Dates: start: 20171005, end: 20171009
  13. DILAUDID [Suspect]
     Active Substance: HYDROMORPHONE HYDROCHLORIDE
     Dosage: 0.954 MG, \DAY; MAX DOSE
     Route: 037
     Dates: start: 20171005, end: 20171009
  14. DILAUDID [Suspect]
     Active Substance: HYDROMORPHONE HYDROCHLORIDE
     Dosage: 1.000 MG, \DAY
     Route: 037
     Dates: start: 20171009
  15. DILAUDID [Suspect]
     Active Substance: HYDROMORPHONE HYDROCHLORIDE
     Dosage: 1.219 MG, \DAY; MAX DOSE
     Route: 037
     Dates: start: 20171009
  16. DILAUDID [Suspect]
     Active Substance: HYDROMORPHONE HYDROCHLORIDE
     Dosage: 1.169 MG, \DAY; MAX DOSE
     Route: 037
     Dates: start: 20171009
  17. DILAUDID [Suspect]
     Active Substance: HYDROMORPHONE HYDROCHLORIDE
     Dosage: 1.251 MG, \DAY
     Route: 037
     Dates: start: 20171011
  18. DILAUDID [Suspect]
     Active Substance: HYDROMORPHONE HYDROCHLORIDE
     Dosage: 1.485 MG, \DAY; MAX DOSE
     Route: 037
     Dates: start: 20171011
  19. BUPIVACAINE [Suspect]
     Active Substance: BUPIVACAINE
     Dosage: 8.102 MG, \DAY
     Route: 037
     Dates: start: 20171004, end: 20171005
  20. BUPIVACAINE [Suspect]
     Active Substance: BUPIVACAINE
     Dosage: 12.681 MG, \DAY; MAX DOSE
     Route: 037
     Dates: start: 20171004, end: 20171005
  21. BUPIVACAINE [Suspect]
     Active Substance: BUPIVACAINE
     Dosage: 9.722 MG, \DAY
     Route: 037
     Dates: start: 20171005, end: 20171009
  22. BUPIVACAINE [Suspect]
     Active Substance: BUPIVACAINE
     Dosage: 15.461 MG, \DAY; MAX DOSE
     Route: 037
     Dates: start: 20171005, end: 20171009
  23. BUPIVACAINE [Suspect]
     Active Substance: BUPIVACAINE
     Dosage: 16.204 MG, \DAY
     Route: 037
     Dates: start: 20171009
  24. BUPIVACAINE [Suspect]
     Active Substance: BUPIVACAINE
     Dosage: 19.747 MG, \DAY; MAX DOSE
     Route: 037
     Dates: start: 20171009
  25. BUPIVACAINE [Suspect]
     Active Substance: BUPIVACAINE
     Dosage: 18.941 MG, \DAY; MAX DOSE
     Route: 037
     Dates: start: 20171009
  26. BUPIVACAINE [Suspect]
     Active Substance: BUPIVACAINE
     Dosage: 20.281 MG, \DAY
     Route: 037
     Dates: start: 20171011
  27. BUPIVACAINE [Suspect]
     Active Substance: BUPIVACAINE
     Dosage: 24.058 MG, \DAY; MAX DOSE
     Route: 037
     Dates: start: 20171011
  28. CLONIDINE [Suspect]
     Active Substance: CLONIDINE
     Dosage: 7.501 ?G, \DAY
     Route: 037
     Dates: start: 20171004, end: 20171005
  29. CLONIDINE [Suspect]
     Active Substance: CLONIDINE
     Dosage: 11.742 ?G, \DAY; MAX DOSE
     Route: 037
     Dates: start: 20171004, end: 20171005
  30. CLONIDINE [Suspect]
     Active Substance: CLONIDINE
     Dosage: 9.002 ?G, \DAY
     Route: 037
     Dates: start: 20171005, end: 20171009
  31. CLONIDINE [Suspect]
     Active Substance: CLONIDINE
     Dosage: 14.316 ?G, \DAY; MAX DOSE
     Route: 037
     Dates: start: 20171005, end: 20171009
  32. CLONIDINE [Suspect]
     Active Substance: CLONIDINE
     Dosage: 15.003 ?G, \DAY
     Route: 037
     Dates: start: 20171009
  33. CLONIDINE [Suspect]
     Active Substance: CLONIDINE
     Dosage: 18.285 ?G, \DAY; MAX DOSE
     Route: 037
     Dates: start: 20171009
  34. CLONIDINE [Suspect]
     Active Substance: CLONIDINE
     Dosage: 17.538 ?G, \DAY; MAX DOSE
     Route: 037
     Dates: start: 20171009
  35. CLONIDINE [Suspect]
     Active Substance: CLONIDINE
     Dosage: 18.779 ?G, \DAY
     Route: 037
     Dates: start: 20171011
  36. CLONIDINE [Suspect]
     Active Substance: CLONIDINE
     Dosage: 22.275 ?G, \DAY; MAX DOSE
     Route: 037
     Dates: start: 20171011
  37. DILAUDID [Suspect]
     Active Substance: HYDROMORPHONE HYDROCHLORIDE
     Dosage: 1.500 MG, \DAY
     Route: 037
     Dates: start: 20171114
  38. DILAUDID [Suspect]
     Active Substance: HYDROMORPHONE HYDROCHLORIDE
     Dosage: 1.864 MG, \DAY; MAX DOSE
     Route: 037
     Dates: start: 20171114
  39. BACLOFEN [Suspect]
     Active Substance: BACLOFEN
     Dosage: 120.03 ?G, \DAY
     Route: 037
     Dates: start: 20171114
  40. BACLOFEN [Suspect]
     Active Substance: BACLOFEN
     Dosage: 149.14 ?G, \DAY; MAX DOSE
     Route: 037
     Dates: start: 20171114
  41. BUPIVACAINE [Suspect]
     Active Substance: BUPIVACAINE
     Dosage: 18.004 MG, \DAY
     Route: 037
     Dates: start: 20171114
  42. BUPIVACAINE [Suspect]
     Active Substance: BUPIVACAINE
     Dosage: 22.371 MG, \DAY; MAX DOSE
     Route: 037
     Dates: start: 20171114
  43. CLONIDINE [Suspect]
     Active Substance: CLONIDINE
     Dosage: 90.02 ?G, \DAY
     Route: 037
     Dates: start: 20171114
  44. CLONIDINE [Suspect]
     Active Substance: CLONIDINE
     Dosage: 111.85 ?G, \DAY; MAX DOSE
     Route: 037
     Dates: start: 20171114

REACTIONS (9)
  - Drug withdrawal syndrome [Recovered/Resolved]
  - Dyspnoea [Recovered/Resolved]
  - Feeling abnormal [Recovered/Resolved]
  - Dizziness [Recovered/Resolved]
  - Hyperhidrosis [Recovered/Resolved]
  - Device occlusion [Recovered/Resolved]
  - Procedural headache [Recovered/Resolved]
  - Implant site pain [Recovered/Resolved]
  - Medical device site discomfort [Recovered/Resolved]

NARRATIVE: CASE EVENT DATE: 20171006
